FAERS Safety Report 8008804-3 (Version None)
Quarter: 2011Q4

REPORT INFORMATION
  Report Type: 
  Country: None (occurrence: None)
  Receive Date: 20111227
  Receipt Date: 20111220
  Transmission Date: 20120403
  Serious: Yes (Hospitalization)
  Sender: FDA-Public Use
  Company Number: PHHY2010NL87923

PATIENT
  Sex: Male

DRUGS (9)
  1. FENTANYL [Concomitant]
     Dosage: 100 UG, ONCE PER 3 DAYS
  2. AMLODIPINE [Concomitant]
     Dosage: 5 MG, UNK
  3. ZOMETA [Suspect]
     Dosage: 4MG/5ML / 28 DAYS
     Dates: start: 20111122
  4. ZOMETA [Suspect]
     Dosage: 4MG/5ML / 28 DAYS
     Dates: start: 20101129
  5. ZOMETA [Suspect]
     Dosage: 4MG/5ML / 28 DAYS
     Dates: start: 20101223
  6. MAALOX                                  /NET/ [Concomitant]
     Dosage: 15 ML, UNK
  7. ZOMETA [Suspect]
     Dosage: 4MG/5ML / 28 DAYS
     Dates: start: 20111220
  8. BICALUTAMIDE [Concomitant]
  9. ZOMETA [Suspect]
     Indication: PROSTATE CANCER METASTATIC
     Dosage: 4MG/5ML / 28 DAYS
     Dates: start: 20090421

REACTIONS (6)
  - SHOCK [None]
  - PYREXIA [None]
  - HAEMORRHAGE [None]
  - UROSEPSIS [None]
  - URINARY TRACT INFECTION [None]
  - FATIGUE [None]
